FAERS Safety Report 6134075-9 (Version None)
Quarter: 2009Q1

REPORT INFORMATION
  Report Type: 
  Country: None (occurrence: None)
  Receive Date: 20090326
  Receipt Date: 20090317
  Transmission Date: 20090719
  Serious: Yes (Other)
  Sender: FDA-Public Use
  Company Number: PHHY2009DE10543

PATIENT
  Sex: Female

DRUGS (2)
  1. ZOMETA [Suspect]
     Dosage: UNK
     Route: 042
     Dates: start: 20090112, end: 20090112
  2. ZOMETA [Suspect]
     Dosage: UNK
     Route: 042
     Dates: start: 20090309, end: 20090309

REACTIONS (4)
  - IMPAIRED HEALING [None]
  - PAIN IN JAW [None]
  - SINUSITIS [None]
  - TOOTH EXTRACTION [None]
